FAERS Safety Report 6871976-8 (Version None)
Quarter: 2010Q3

REPORT INFORMATION
  Report Type: 
  Country: None (occurrence: None)
  Receive Date: 20100723
  Receipt Date: 20100713
  Transmission Date: 20110219
  Serious: Yes (Other)
  Sender: FDA-Public Use
  Company Number: BR-PFIZER INC-2010087055

PATIENT
  Age: 65 Year
  Sex: Female
  Weight: 83 kg

DRUGS (7)
  1. CHAMPIX [Suspect]
     Indication: TOBACCO USER
     Dosage: 0.5 MG, 1X/DAY (EVERY 24 HOURS)
     Route: 048
     Dates: start: 20100712
  2. FRONTAL [Concomitant]
     Indication: DEPRESSION
     Dosage: UNK
  3. RIVOTRIL [Concomitant]
     Indication: DEPRESSION
     Dosage: UNK
  4. OMEPRAZOLE [Concomitant]
     Indication: GASTRITIS
     Dosage: UNK
  5. ATENOLOL [Concomitant]
     Indication: ARRHYTHMIA
     Dosage: UNK
  6. ENALAPRIL [Concomitant]
     Indication: HYPERTENSION
     Dosage: UNK
  7. AMLODIPINE [Concomitant]
     Indication: HYPERTENSION
     Dosage: UNK

REACTIONS (3)
  - AGITATION [None]
  - DEPRESSION [None]
  - MUSCLE RIGIDITY [None]
